FAERS Safety Report 11295210 (Version 2)
Quarter: 2016Q3

REPORT INFORMATION
  Report Type: Report from Study
  Country: GT (occurrence: GT)
  Receive Date: 20150723
  Receipt Date: 20160803
  Transmission Date: 20161109
  Serious: Yes (Other)
  Sender: FDA-Public Use
  Company Number: PHHY2015GT086393

PATIENT
  Age: 31 Year
  Sex: Female

DRUGS (4)
  1. OXYCODONE [Concomitant]
     Active Substance: OXYCODONE
     Indication: PAIN
     Dosage: 10 MG, BID
     Route: 065
     Dates: start: 20130306, end: 20140508
  2. TIZANIDINE. [Concomitant]
     Active Substance: TIZANIDINE
     Indication: MUSCLE SPASTICITY
     Dosage: 4 MG, QD
     Route: 065
     Dates: start: 20140508, end: 20141010
  3. PREGABALINE [Concomitant]
     Active Substance: PREGABALIN
     Indication: PAIN
     Dosage: 150 MG, QD
     Route: 065
     Dates: start: 20110627, end: 20140508
  4. GILENYA [Suspect]
     Active Substance: FINGOLIMOD HYDROCHLORIDE
     Indication: PRODUCT USED FOR UNKNOWN INDICATION
     Dosage: UNK
     Route: 065

REACTIONS (3)
  - Gastric haemorrhage [Unknown]
  - Duodenitis [Unknown]
  - Abdominal pain [Unknown]
